FAERS Safety Report 9387077 (Version 1)
Quarter: 2013Q3

REPORT INFORMATION
  Report Type: Spontaneous
  Country: US (occurrence: None)
  Receive Date: 20130703
  Receipt Date: 20130703
  Transmission Date: 20140515
  Serious: Yes (Other)
  Sender: FDA-Public Use
  Company Number: None

PATIENT
  Age: 82 Year
  Sex: Male
  Weight: 73.48 kg

DRUGS (1)
  1. ATENOLOL [Suspect]
     Indication: ARRHYTHMIA
     Dosage: 25MGM 1 PILL TWICE DAILY ORAL
     Route: 048
     Dates: start: 20040101

REACTIONS (6)
  - Fatigue [None]
  - Dyspnoea [None]
  - Heart rate decreased [None]
  - Syncope [None]
  - Extrasystoles [None]
  - Product substitution issue [None]
